FAERS Safety Report 5279923-X (Version None)
Quarter: 2007Q1

REPORT INFORMATION
  Report Type: 
  Country: None (occurrence: None)
  Receive Date: 20070326
  Receipt Date: 20070326
  Transmission Date: 20070707
  Serious: No
  Sender: FDA-Public Use
  Company Number: None

PATIENT
  Age: 43 Year
  Sex: Female
  Weight: 90.7194 kg

DRUGS (1)
  1. LEXAPRO [Suspect]
     Indication: MAJOR DEPRESSION
     Dosage: 10MG 1/2 - 1 TAB DAILY PO
     Route: 048
     Dates: start: 20050801, end: 20061201

REACTIONS (4)
  - BRUXISM [None]
  - TARDIVE DYSKINESIA [None]
  - THROAT IRRITATION [None]
  - TOOTH DISORDER [None]
